FAERS Safety Report 9173947 (Version 3)
Quarter: 2013Q3

REPORT INFORMATION
  Report Type: Spontaneous
  Country: GB (occurrence: GB)
  Receive Date: 20130320
  Receipt Date: 20130702
  Transmission Date: 20140515
  Serious: Yes (Other)
  Sender: FDA-Public Use
  Company Number: GB-UCBSA-081000

PATIENT
  Age: 48 Year
  Sex: Female

DRUGS (4)
  1. CIMZIA [Suspect]
     Indication: RHEUMATOID ARTHRITIS
     Route: 058
     Dates: start: 201212, end: 201305
  2. IBUPROFEN [Concomitant]
  3. THYROXINE [Concomitant]
     Route: 048
  4. PARACETAL [Concomitant]

REACTIONS (1)
  - Alopecia totalis [Not Recovered/Not Resolved]
